FAERS Safety Report 8470212-9 (Version None)
Quarter: 2012Q2

REPORT INFORMATION
  Report Type: 
  Country: None (occurrence: None)
  Receive Date: 20120627
  Receipt Date: 20120613
  Transmission Date: 20120825
  Serious: Yes (Death, Hospitalization, Other)
  Sender: FDA-Public Use
  Company Number: HK-RANBAXY-2011RR-45733

PATIENT
  Sex: Female

DRUGS (3)
  1. SIMVASTATIN [Suspect]
     Indication: TYPE IIA HYPERLIPIDAEMIA
     Dosage: 40 MG, UNK
     Route: 065
  2. NICERGOLINE [Concomitant]
     Indication: DEMENTIA
     Route: 065
  3. DILTIAZEM HYDROCHOLORIDE [Interacting]
     Indication: HYPERTENSION
     Dosage: 60 MG, BID
     Route: 065

REACTIONS (4)
  - RENAL IMPAIRMENT [None]
  - MUSCULAR WEAKNESS [None]
  - DRUG INTERACTION [None]
  - MYOPATHY [None]
